FAERS Safety Report 10345734 (Version 1)
Quarter: 2014Q3

REPORT INFORMATION
  Report Type: Spontaneous
  Country: NL (occurrence: NL)
  Receive Date: 20140728
  Receipt Date: 20140728
  Transmission Date: 20150326
  Serious: Yes (Life-Threatening, Hospitalization, Disabling)
  Sender: FDA-Public Use
  Company Number: NL-GLAXOSMITHKLINE-B1017735A

PATIENT
  Age: 58 Year
  Sex: Male

DRUGS (5)
  1. CITALOPRAM [Suspect]
     Active Substance: CITALOPRAM HYDROBROMIDE
     Indication: DEPRESSION
     Dosage: 20MG PER DAY
     Route: 048
     Dates: start: 20140417, end: 20140516
  2. OXAZEPAM. [Suspect]
     Active Substance: OXAZEPAM
     Indication: RESTLESSNESS
     Dosage: 10MG THREE TIMES PER DAY
     Route: 048
     Dates: start: 20140402, end: 20140516
  3. CODEINE [Suspect]
     Active Substance: CODEINE
     Indication: COUGH
     Dosage: 20MG PER DAY
     Route: 048
     Dates: start: 20140402
  4. SALBUTAMOL [Suspect]
     Active Substance: ALBUTEROL
     Indication: COUGH
     Dosage: 100UG THREE TIMES PER DAY
     Route: 055
     Dates: start: 20140402
  5. BECLOMETHASONE [Suspect]
     Active Substance: BECLOMETHASONE
     Indication: ASTHMA
     Route: 055
     Dates: start: 20140402

REACTIONS (3)
  - Delirium [Recovered/Resolved]
  - Amnesia [Recovering/Resolving]
  - Intentional self-injury [Recovering/Resolving]

NARRATIVE: CASE EVENT DATE: 20140516
